FAERS Safety Report 13906263 (Version 1)
Quarter: 2017Q3

REPORT INFORMATION
  Report Type: Spontaneous
  Country: US (occurrence: None)
  Receive Date: 20170822
  Receipt Date: 20170822
  Transmission Date: 20171127
  Serious: No
  Sender: FDA-Public Use
  Company Number: None

PATIENT
  Age: 43 Year
  Sex: Female

DRUGS (5)
  1. TOBRAMYCIN. [Concomitant]
     Active Substance: TOBRAMYCIN
  2. ADVAIR HFA [Concomitant]
     Active Substance: FLUTICASONE PROPIONATE\SALMETEROL XINAFOATE
  3. PULMOZYME [Concomitant]
     Active Substance: DORNASE ALFA
  4. ACETYLCYSTEINE. [Concomitant]
     Active Substance: ACETYLCYSTEINE
  5. IPRATROPIUM-ALBUTEROL 0.5-3MG NEB SL [Suspect]
     Active Substance: ALBUTEROL SULFATE\IPRATROPIUM BROMIDE
     Indication: CYSTIC FIBROSIS
     Dosage: DOSE - 1 VIAL?ROUTE - VIA NEB
     Dates: start: 20101021

REACTIONS (1)
  - Burning sensation [None]

NARRATIVE: CASE EVENT DATE: 201701
